FAERS Safety Report 22586037 (Version 1)
Quarter: 2023Q2

REPORT INFORMATION
  Report Type: Spontaneous
  Country: SE (occurrence: SE)
  Receive Date: 20230610
  Receipt Date: 20230610
  Transmission Date: 20230722
  Serious: Yes (Hospitalization)
  Sender: FDA-Public Use
  Company Number: None

PATIENT
  Age: 55 Year
  Sex: Male

DRUGS (10)
  1. ATOMOXETINE HYDROCHLORIDE [Suspect]
     Active Substance: ATOMOXETINE HYDROCHLORIDE
     Indication: Attention deficit hyperactivity disorder
     Dosage: 1X1, FOR ACTIVE INGREDIENT ATOMOXETINE HYDROCHLORIDE THE STRENGTH IS 45.72 MILLIGRAM, FOR ACTIVE ING
     Route: 065
     Dates: start: 20190627, end: 20230424
  2. LISDEXAMFETAMINE DIMESYLATE [Suspect]
     Active Substance: LISDEXAMFETAMINE DIMESYLATE
     Indication: Attention deficit hyperactivity disorder
     Dosage: 70+30+0
     Route: 065
     Dates: start: 20180126, end: 20230424
  3. FRAGMIN [Suspect]
     Active Substance: DALTEPARIN SODIUM
     Indication: Pulmonary embolism
     Dosage: ACCORDING TO A SPECIAL TREATMENT SCHEDULE, NOT SPECIFIED IN THE MEDICAL RECORD AS FAR AS I CAN SEE
     Route: 065
     Dates: start: 20230417, end: 20230510
  4. FRAGMIN [Suspect]
     Active Substance: DALTEPARIN SODIUM
     Indication: Thrombosis prophylaxis
  5. BISOPROLOL [Concomitant]
     Active Substance: BISOPROLOL
     Indication: Product used for unknown indication
     Dosage: 0.5X1, FOR ACTIVE INGREDIENT BISOPROLOL THE STRENGTH IS 8.5 MILLIGRAMS., FOR ACTIVE INGREDIENT BISOP
     Route: 065
     Dates: start: 20180828
  6. PROPIOMAZINE [Concomitant]
     Active Substance: PROPIOMAZINE
     Indication: Product used for unknown indication
     Dosage: 0.5-2 VB, FOR ACTIVE INGREDIENT PROPIOMAZINE MALEATE THE STRENGTH IS 34 MILLIGRAMS, FOR ACTIVE INGRE
     Route: 065
     Dates: start: 20170221
  7. BUDESONIDE [Concomitant]
     Active Substance: BUDESONIDE
     Indication: Product used for unknown indication
     Dosage: 1X2
     Dates: start: 20190305
  8. ELIQUIS [Concomitant]
     Active Substance: APIXABAN
     Indication: Product used for unknown indication
     Dosage: 1X2
     Route: 065
     Dates: start: 20221111, end: 20230423
  9. CITALOPRAM [Concomitant]
     Active Substance: CITALOPRAM HYDROBROMIDE
     Indication: Product used for unknown indication
     Dosage: 1X1, THE PATIENT IS NOTIFIED OF WITHDRAWAL 221227 DUE TO ELIQUIS, FOR ACTIVE INGREDIENT CITALOPRAM H
     Route: 065
     Dates: start: 20150205, end: 20221227
  10. OMEPRAZOLE MAGNESIUM [Concomitant]
     Active Substance: OMEPRAZOLE MAGNESIUM
     Indication: Product used for unknown indication
     Dosage: 1X1
     Route: 065
     Dates: start: 20170208

REACTIONS (1)
  - Subarachnoid haemorrhage [Recovering/Resolving]

NARRATIVE: CASE EVENT DATE: 20230424
